FAERS Safety Report 4927769-1 (Version None)
Quarter: 2006Q1

REPORT INFORMATION
  Report Type: 
  Country: None (occurrence: None)
  Receive Date: 20060228
  Receipt Date: 20050804
  Transmission Date: 20060701
  Serious: No
  Sender: FDA-Public Use
  Company Number: US-GLAXOSMITHKLINE-A0568971A

PATIENT
  Sex: Male

DRUGS (13)
  1. ZIAGEN [Suspect]
     Indication: HIV INFECTION
     Dosage: 300MG TWICE PER DAY
     Route: 048
  2. ALBUTEROL [Concomitant]
  3. ANDROGEL [Concomitant]
  4. BECONASE [Concomitant]
  5. KLONOPIN [Concomitant]
  6. EFFEXOR [Concomitant]
  7. IBUPROFEN [Concomitant]
  8. KALETRA [Concomitant]
  9. LEXAPRO [Concomitant]
  10. LISINOPRIL [Concomitant]
  11. PRILOSEC [Concomitant]
  12. SEROQUEL [Concomitant]
  13. NEURONTIN [Concomitant]

REACTIONS (4)
  - ABDOMINAL PAIN [None]
  - DIARRHOEA [None]
  - HEADACHE [None]
  - NAUSEA [None]
